FAERS Safety Report 9719275 (Version 2)
Quarter: 2013Q4

REPORT INFORMATION
  Report Type: Spontaneous
  Country: US (occurrence: US)
  Receive Date: 20131127
  Receipt Date: 20131216
  Transmission Date: 20140711
  Serious: Yes (Death, Other)
  Sender: FDA-Public Use
  Company Number: US-TAKEDA-2013TUS002610

PATIENT
  Sex: 0

DRUGS (2)
  1. ULORIC [Suspect]
     Indication: GOUT
     Dosage: UNK, QD,  3 OR 4 YRS
     Route: 048
     Dates: end: 20131016
  2. ULORIC [Suspect]
     Indication: PAIN IN EXTREMITY

REACTIONS (2)
  - Hepatic cancer [Fatal]
  - Weight decreased [Unknown]
